FAERS Safety Report 17232872 (Version 2)
Quarter: 2020Q1

REPORT INFORMATION
  Report Type: Spontaneous
  Country: US (occurrence: US)
  Receive Date: 20200103
  Receipt Date: 20200214
  Transmission Date: 20200409
  Serious: Yes (Other)
  Sender: FDA-Public Use
  Company Number: US-ELI_LILLY_AND_COMPANY-US201912012888

PATIENT
  Age: 69 Year
  Sex: Male

DRUGS (4)
  1. HUMALOG MIX75/25 [Suspect]
     Active Substance: INSULIN LISPRO
     Indication: TYPE 2 DIABETES MELLITUS
     Dosage: 53 U, EACH MORNING
     Route: 058
     Dates: start: 2016
  2. HUMALOG MIX75/25 [Suspect]
     Active Substance: INSULIN LISPRO
     Dosage: 17 U, DAILY (NIGHT)
     Route: 058
     Dates: start: 2016
  3. HUMALOG MIX75/25 [Suspect]
     Active Substance: INSULIN LISPRO
     Dosage: 52 U, EACH MORNING
     Route: 058
     Dates: start: 2016
  4. METFORMIN [Concomitant]
     Active Substance: METFORMIN HYDROCHLORIDE
     Indication: TYPE 2 DIABETES MELLITUS

REACTIONS (8)
  - Hypertension [Not Recovered/Not Resolved]
  - Vein disorder [Recovering/Resolving]
  - Liver injury [Not Recovered/Not Resolved]
  - Visual impairment [Recovering/Resolving]
  - Cataract [Recovering/Resolving]
  - Eye pain [Recovering/Resolving]
  - Foot fracture [Recovered/Resolved]
  - Pain in extremity [Unknown]

NARRATIVE: CASE EVENT DATE: 201908
